FAERS Safety Report 17756294 (Version 1)
Quarter: 2020Q2

REPORT INFORMATION
  Report Type: Spontaneous
  Country: CN (occurrence: CN)
  Receive Date: 20200507
  Receipt Date: 20200507
  Transmission Date: 20200714
  Serious: Yes (Hospitalization)
  Sender: FDA-Public Use
  Company Number: CN-UNICHEM PHARMACEUTICALS (USA) INC-UCM202004-000531

PATIENT
  Age: 29 Year
  Sex: Female

DRUGS (4)
  1. CEPHALOSPORIN [Suspect]
     Active Substance: UNSPECIFIED INGREDIENT
     Indication: INTRA-UTERINE CONTRACEPTIVE DEVICE REMOVAL
     Dosage: UNKNOWN
  2. METRONIDAZOLE. [Suspect]
     Active Substance: METRONIDAZOLE
     Indication: INTRA-UTERINE CONTRACEPTIVE DEVICE REMOVAL
     Dosage: UNKNOWN
  3. CLOTRIMAZOLE. [Suspect]
     Active Substance: CLOTRIMAZOLE
     Indication: INTRA-UTERINE CONTRACEPTIVE DEVICE REMOVAL
     Dosage: UNKNOWN
  4. DIAMMONIUM GLYCYRRHIZINATE [Concomitant]
     Active Substance: HERBALS\DIAMMONIUM GLYCYRRHIZINATE
     Indication: LIVER INJURY
     Dosage: UNKNOWN

REACTIONS (1)
  - Vanishing bile duct syndrome [Recovering/Resolving]
